FAERS Safety Report 20523075 (Version 3)
Quarter: 2022Q1

REPORT INFORMATION
  Report Type: Spontaneous
  Country: US (occurrence: US)
  Receive Date: 20220227
  Receipt Date: 20220324
  Transmission Date: 20220424
  Serious: Yes (Other)
  Sender: FDA-Public Use
  Company Number: US-GE HEALTHCARE-2022CSU001187

PATIENT
  Age: 67 Year
  Sex: Male

DRUGS (4)
  1. OMNIPAQUE [Suspect]
     Active Substance: IOHEXOL
     Indication: Computerised tomogram abdomen
     Dosage: 80 ML AT 2 ML/SECOND, ONCE
     Route: 042
     Dates: start: 20220216, end: 20220216
  2. OMNIPAQUE [Suspect]
     Active Substance: IOHEXOL
     Indication: Product used for unknown indication
  3. SALINE [Suspect]
     Active Substance: SODIUM CHLORIDE
     Indication: Product used for unknown indication
     Dosage: 20 ML AT 2 ML/SECOND, ONCE
     Route: 042
     Dates: start: 20220216, end: 20220216
  4. SALINE [Suspect]
     Active Substance: SODIUM CHLORIDE
     Dosage: 20 ML AT 2 ML/SECOND, ONCE
     Route: 042
     Dates: start: 20220216, end: 20220216

REACTIONS (3)
  - Air embolism [Unknown]
  - Device malfunction [Unknown]
  - Product administration error [Recovered/Resolved]

NARRATIVE: CASE EVENT DATE: 20220216
